FAERS Safety Report 7870969-1 (Version None)
Quarter: 2011Q4

REPORT INFORMATION
  Report Type: 
  Country: None (occurrence: None)
  Receive Date: 20111029
  Receipt Date: 20110223
  Transmission Date: 20120403
  Serious: No
  Sender: FDA-Public Use
  Company Number: US-AMGEN-USASP2011010542

PATIENT
  Age: 45 Year
  Sex: Female

DRUGS (2)
  1. ENBREL [Suspect]
     Indication: JUVENILE ARTHRITIS
     Dosage: 25 MG, 2 TIMES/WK
     Dates: start: 20101101
  2. METHOTREXATE [Concomitant]
     Dosage: UNK

REACTIONS (8)
  - FATIGUE [None]
  - JOINT SWELLING [None]
  - UPPER RESPIRATORY TRACT CONGESTION [None]
  - DRUG EFFECT DECREASED [None]
  - PAIN [None]
  - ARTHRALGIA [None]
  - MUSCULOSKELETAL PAIN [None]
  - MALAISE [None]
